FAERS Safety Report 6980324-4 (Version None)
Quarter: 2010Q3

REPORT INFORMATION
  Report Type: 
  Country: None (occurrence: None)
  Receive Date: 20100914
  Receipt Date: 20100908
  Transmission Date: 20110219
  Serious: Yes (Life-Threatening, Hospitalization)
  Sender: FDA-Public Use
  Company Number: DE-ROCHE-726084

PATIENT
  Sex: Male
  Weight: 61 kg

DRUGS (3)
  1. PEGINTERFERON ALFA-2A [Suspect]
     Route: 058
     Dates: start: 20100122, end: 20100830
  2. RIBAVIRIN [Suspect]
     Dosage: 400 MG IN MORNING AND 600 MG IN EVENING
     Route: 048
     Dates: start: 20100122, end: 20100830
  3. BLINDED TMC435 [Suspect]
     Dosage: DOSE BLINDED
     Route: 048
     Dates: start: 20100122, end: 20100830

REACTIONS (3)
  - BRAIN INJURY [None]
  - COMA [None]
  - MENINGITIS BACTERIAL [None]
